FAERS Safety Report 4378459-8 (Version None)
Quarter: 2004Q2

REPORT INFORMATION
  Report Type: 
  Country: None (occurrence: None)
  Receive Date: 20040609
  Receipt Date: 20040527
  Transmission Date: 20050107
  Serious: Yes (Hospitalization)
  Sender: FDA-Public Use
  Company Number: US-JNJFOC-20040600203

PATIENT
  Age: 48 Year
  Sex: Female
  Weight: 68.0396 kg

DRUGS (6)
  1. REMICADE [Suspect]
     Indication: CROHN'S DISEASE
     Dosage: INTRAVENOUS
     Route: 042
     Dates: start: 20030101
  2. REMICADE [Suspect]
     Indication: CROHN'S DISEASE
     Dosage: INTRAVENOUS
     Route: 042
     Dates: start: 20040422
  3. ENTACORT (ECONACORT) [Concomitant]
  4. LOMOTIL [Concomitant]
  5. TYLENOL [Concomitant]
  6. MERCAPTOPURINE [Concomitant]

REACTIONS (2)
  - ASTHENIA [None]
  - PAIN IN JAW [None]
